FAERS Safety Report 5221864-8 (Version None)
Quarter: 2007Q1

REPORT INFORMATION
  Report Type: 
  Country: None (occurrence: None)
  Receive Date: 20070126
  Receipt Date: 20070126
  Transmission Date: 20070707
  Serious: Yes (Other)
  Sender: FDA-Public Use
  Company Number: None

PATIENT
  Sex: Male
  Weight: 59.8 kg

DRUGS (9)
  1. VENOFER [Suspect]
     Indication: IRON DEFICIENCY ANAEMIA
     Dosage: 500MG   ONE DOSE  IV BOLUS
     Route: 040
     Dates: start: 20060725, end: 20060725
  2. LASIX [Concomitant]
  3. LISINOPRIL [Concomitant]
  4. ACTOS [Concomitant]
  5. ASPIRIN [Concomitant]
  6. ATENOLOL [Concomitant]
  7. ATORVASTATIN CALCIUM [Concomitant]
  8. HUMULIN 70/30 [Concomitant]
  9. ARANESP [Concomitant]

REACTIONS (6)
  - BACK PAIN [None]
  - DIARRHOEA [None]
  - DRUG INTOLERANCE [None]
  - INFUSION RELATED REACTION [None]
  - NAUSEA [None]
  - VOMITING [None]
